FAERS Safety Report 19776586 (Version 1)
Quarter: 2021Q3

REPORT INFORMATION
  Report Type: Spontaneous
  Country: KR (occurrence: KR)
  Receive Date: 20210901
  Receipt Date: 20210901
  Transmission Date: 20211014
  Serious: Yes (Hospitalization)
  Sender: FDA-Public Use
  Company Number: KR-ELI_LILLY_AND_COMPANY-KR202108010192

PATIENT
  Sex: Male

DRUGS (2)
  1. FORSTEO 250UG/ML [Suspect]
     Active Substance: TERIPARATIDE
     Indication: BACK INJURY
     Dosage: 20 UG, DAILY
     Route: 058
  2. FORSTEO 250UG/ML [Suspect]
     Active Substance: TERIPARATIDE
     Dosage: 20 UG, MONTHLY (1/M)
     Route: 058

REACTIONS (3)
  - Hip fracture [Unknown]
  - Incorrect product administration duration [Unknown]
  - Off label use [Unknown]
